FAERS Safety Report 24380021 (Version 10)
Quarter: 2025Q2

REPORT INFORMATION
  Report Type: Report from Study
  Country: US (occurrence: US)
  Receive Date: 20240930
  Receipt Date: 20250512
  Transmission Date: 20250717
  Serious: Yes (Hospitalization, Other)
  Sender: SUNOVION
  Company Number: US-SUMITOMO PHARMA SWITZERLAND GMBH-2024SPA002680

PATIENT

DRUGS (7)
  1. ORGOVYX [Suspect]
     Active Substance: RELUGOLIX
     Indication: Prostate cancer
     Dosage: 360 MG, SINGLE
     Route: 048
     Dates: start: 20240417, end: 20240417
  2. ORGOVYX [Suspect]
     Active Substance: RELUGOLIX
     Dosage: 120 MG, QD
     Route: 048
     Dates: start: 20240418
  3. ROSUVASTATIN [Suspect]
     Active Substance: ROSUVASTATIN
     Route: 065
  4. LEVOTHYROXINE [Suspect]
     Active Substance: LEVOTHYROXINE
     Route: 065
  5. ERLEADA [Concomitant]
     Active Substance: APALUTAMIDE
     Indication: Prostate cancer
     Dosage: 120 MG, QD
     Route: 065
     Dates: start: 20240418
  6. ERLEADA [Concomitant]
     Active Substance: APALUTAMIDE
     Dosage: 120 MG, QD
     Route: 065
  7. NUBEQA [Concomitant]
     Active Substance: DAROLUTAMIDE
     Indication: Prostate cancer
     Dosage: 600 MG, BID
     Route: 065
     Dates: start: 20250322

REACTIONS (17)
  - Sepsis [Recovering/Resolving]
  - Cough [Unknown]
  - Blindness transient [Unknown]
  - Somnolence [Unknown]
  - Memory impairment [Unknown]
  - Gait disturbance [Unknown]
  - Hypoacusis [Unknown]
  - Illness [Unknown]
  - Seasonal allergy [Unknown]
  - Urinary tract infection [Unknown]
  - Haemorrhage [Unknown]
  - Rash [Unknown]
  - Asthenia [Unknown]
  - Back pain [Unknown]
  - Anaemia [Unknown]
  - Weight increased [Unknown]
  - Incorrect dose administered [Unknown]

NARRATIVE: CASE EVENT DATE: 20240506
